FAERS Safety Report 7915710-9 (Version None)
Quarter: 2011Q4

REPORT INFORMATION
  Report Type: 
  Country: None (occurrence: None)
  Receive Date: 20111115
  Receipt Date: 20111012
  Transmission Date: 20120403
  Serious: Yes (Hospitalization)
  Sender: FDA-Public Use
  Company Number: JP-GLAXOSMITHKLINE-B0755277A

PATIENT
  Sex: Male

DRUGS (4)
  1. MIRACLID [Concomitant]
     Dosage: 100IU3 PER DAY
     Route: 042
     Dates: start: 20111004, end: 20111012
  2. ARIXTRA [Suspect]
     Indication: PULMONARY EMBOLISM
     Dosage: 1.5MG PER DAY
     Route: 058
     Dates: start: 20111006, end: 20111008
  3. MEROPENEM [Concomitant]
     Indication: SEPSIS
     Dosage: 1G PER DAY
     Route: 042
     Dates: start: 20111006, end: 20111012
  4. UNKNOWN DRUG [Suspect]
     Indication: DISSEMINATED INTRAVASCULAR COAGULATION
     Dosage: 1IUAX PER DAY
     Route: 042
     Dates: start: 20111006, end: 20111008

REACTIONS (10)
  - DISSEMINATED INTRAVASCULAR COAGULATION [None]
  - PYREXIA [None]
  - PLATELET COUNT DECREASED [None]
  - INTRA-ABDOMINAL HAEMORRHAGE [None]
  - ANAEMIA [None]
  - SEPSIS [None]
  - HAEMATOMA [None]
  - SUTURE RUPTURE [None]
  - HAEMORRHAGIC ASCITES [None]
  - HAEMOGLOBIN DECREASED [None]
